FAERS Safety Report 25629491 (Version 1)
Quarter: 2025Q3

REPORT INFORMATION
  Report Type: Spontaneous
  Country: US (occurrence: US)
  Receive Date: 20250731
  Receipt Date: 20250731
  Transmission Date: 20251021
  Serious: Yes (Hospitalization)
  Sender: Day One Biopharmaceuticals
  Company Number: US-Day One Biopharmaceuticals Inc.-2025US001170

PATIENT

DRUGS (2)
  1. TOVORAFENIB [Suspect]
     Active Substance: TOVORAFENIB
     Indication: Astrocytoma
  2. TOVORAFENIB [Suspect]
     Active Substance: TOVORAFENIB
     Indication: Astrocytoma
     Route: 065

REACTIONS (1)
  - Intracranial tumour haemorrhage [Recovering/Resolving]
